FAERS Safety Report 15691895 (Version 4)
Quarter: 2019Q2

REPORT INFORMATION
  Report Type: Spontaneous
  Country: US (occurrence: US)
  Receive Date: 20181205
  Receipt Date: 20190621
  Transmission Date: 20190711
  Serious: No
  Sender: FDA-Public Use
  Company Number: US-PFIZER INC-2018499748

PATIENT
  Age: 47 Year
  Sex: Female

DRUGS (17)
  1. DOCETAXEL. [Suspect]
     Active Substance: DOCETAXEL
     Indication: TRIPLE NEGATIVE BREAST CANCER
     Dosage: 146 MG, CYCLIC (04 CYCLES EVERY THREE WEEKS)
     Dates: start: 20130319
  2. DOCETAXEL. [Suspect]
     Active Substance: DOCETAXEL
     Dosage: 112 MG, CYCLIC (04 CYCLES EVERY THREE WEEKS)
     Dates: start: 20130604
  3. CYTOXAN [Concomitant]
     Active Substance: CYCLOPHOSPHAMIDE
     Indication: CHEMOTHERAPY
     Dosage: UNK
  4. TAXOTERE [Concomitant]
     Active Substance: DOCETAXEL
     Indication: CHEMOTHERAPY
     Dosage: UNK
  5. BACTRIM [Concomitant]
     Active Substance: SULFAMETHOXAZOLE\TRIMETHOPRIM
     Dosage: UNK
  6. ZOFRAN [Concomitant]
     Active Substance: ONDANSETRON HYDROCHLORIDE
     Dosage: UNK
  7. PROCARDIA [Concomitant]
     Active Substance: NIFEDIPINE
     Dosage: UNK
     Dates: start: 2006
  8. DOCETAXEL. [Suspect]
     Active Substance: DOCETAXEL
     Dosage: 112 MG, CYCLIC (04 CYCLES EVERY THREE WEEKS)
     Dates: start: 20130423
  9. ZOCOR [Concomitant]
     Active Substance: SIMVASTATIN
     Dosage: UNK
     Dates: start: 2006
  10. COLACE [Concomitant]
     Active Substance: DOCUSATE SODIUM
     Dosage: UNK
  11. TRAVATAN [Concomitant]
     Active Substance: TRAVOPROST
     Dosage: UNK
  12. PROCHLORPERAZINE. [Concomitant]
     Active Substance: PROCHLORPERAZINE
     Dosage: UNK
  13. DOCETAXEL. [Suspect]
     Active Substance: DOCETAXEL
     Dosage: 112 MG, CYCLIC (04 CYCLES EVERY THREE WEEKS)
     Dates: start: 20130514
  14. NEOSAR [Concomitant]
     Active Substance: CYCLOPHOSPHAMIDE
     Indication: CHEMOTHERAPY
     Dosage: UNK
  15. NORCO [Concomitant]
     Active Substance: ACETAMINOPHEN\HYDROCODONE BITARTRATE
     Dosage: UNK
  16. DEXAMETHASONE. [Concomitant]
     Active Substance: DEXAMETHASONE
     Dosage: UNK
  17. TIMOPTIC [Concomitant]
     Active Substance: TIMOLOL MALEATE
     Dosage: UNK

REACTIONS (5)
  - Alopecia [Not Recovered/Not Resolved]
  - Hair texture abnormal [Not Recovered/Not Resolved]
  - Hair disorder [Not Recovered/Not Resolved]
  - Hair colour changes [Not Recovered/Not Resolved]
  - Madarosis [Not Recovered/Not Resolved]

NARRATIVE: CASE EVENT DATE: 20131204
